FAERS Safety Report 4365800-5 (Version None)
Quarter: 2004Q2

REPORT INFORMATION
  Report Type: 
  Country: None (occurrence: None)
  Receive Date: 20040520
  Receipt Date: 20040223
  Transmission Date: 20050107
  Serious: No
  Sender: FDA-Public Use
  Company Number: 2004AP00536

PATIENT
  Age: 57 Year
  Sex: Male

DRUGS (20)
  1. IRESSA [Suspect]
     Indication: NON-SMALL CELL LUNG CANCER
     Dosage: 250 MG DAILY PO
     Route: 048
     Dates: start: 20040116, end: 20040127
  2. IRESSA [Suspect]
     Indication: SQUAMOUS CELL CARCINOMA
     Dosage: 250 MG DAILY PO
     Route: 048
     Dates: start: 20040116, end: 20040127
  3. RADIATION THERAPY [Suspect]
     Indication: NON-SMALL CELL LUNG CANCER
     Dosage: 48 GY X 24 OVER 42 DAYS
     Dates: start: 20030930, end: 20031110
  4. MITOMYCIN [Concomitant]
  5. VINDESINE [Concomitant]
  6. CISPLATIN [Concomitant]
  7. RADIATION THERAPY [Concomitant]
  8. PARIET [Concomitant]
  9. GANATON [Concomitant]
  10. MAG-LAX [Concomitant]
  11. LAC B [Concomitant]
  12. PURSENNID [Concomitant]
  13. LOXONIN [Concomitant]
  14. KETOPROFEN [Concomitant]
  15. TETRAMIDE [Concomitant]
  16. LASIX [Concomitant]
  17. TETRAMIDE [Concomitant]
  18. ENSURE [Concomitant]
  19. KENEI G [Concomitant]
  20. ISOTONIC SODIUM CHLORIDE [Concomitant]

REACTIONS (24)
  - ANOREXIA [None]
  - ASCITES [None]
  - BENIGN PROSTATIC HYPERPLASIA [None]
  - BLOOD BILIRUBIN INCREASED [None]
  - BLOOD PH INCREASED [None]
  - BLOOD PRESSURE DECREASED [None]
  - CONSTIPATION [None]
  - DEHYDRATION [None]
  - DEPRESSED LEVEL OF CONSCIOUSNESS [None]
  - GENERAL PHYSICAL HEALTH DETERIORATION [None]
  - HAEMOPTYSIS [None]
  - HYPERCALCAEMIA [None]
  - HYPERGLYCAEMIA [None]
  - INFECTION [None]
  - INTERSTITIAL LUNG DISEASE [None]
  - MALIGNANT NEOPLASM PROGRESSION [None]
  - NEUROGENIC BLADDER [None]
  - NON-SMALL CELL LUNG CANCER [None]
  - PAIN EXACERBATED [None]
  - POSTRENAL FAILURE [None]
  - RADIATION PNEUMONITIS [None]
  - RENAL FAILURE [None]
  - RESIDUAL URINE VOLUME [None]
  - WEIGHT INCREASED [None]
